FAERS Safety Report 9280107 (Version 1)
Quarter: 2013Q2

REPORT INFORMATION
  Report Type: Spontaneous
  Country: CA (occurrence: CA)
  Receive Date: 20130509
  Receipt Date: 20130509
  Transmission Date: 20140414
  Serious: Yes (Hospitalization)
  Sender: FDA-Public Use
  Company Number: CA-AMGEN-CANSP2013031621

PATIENT
  Age: 52 Year
  Sex: Female
  Weight: 65.91 kg

DRUGS (1)
  1. PROLIA [Suspect]
     Indication: OSTEOPOROSIS POSTMENOPAUSAL
     Dosage: UNK
     Dates: start: 20130422

REACTIONS (3)
  - Influenza like illness [Unknown]
  - White blood cell count increased [Unknown]
  - Rheumatoid arthritis [Unknown]
